FAERS Safety Report 10458013 (Version 1)
Quarter: 2014Q3

REPORT INFORMATION
  Report Type: Spontaneous
  Country: US (occurrence: US)
  Receive Date: 20140916
  Receipt Date: 20140916
  Transmission Date: 20150326
  Serious: Yes (Other)
  Sender: FDA-Public Use
  Company Number: US-AMGEN-USASP2014069983

PATIENT
  Age: 61 Year
  Sex: Female

DRUGS (1)
  1. ENBREL [Suspect]
     Active Substance: ETANERCEPT
     Indication: RHEUMATOID ARTHRITIS
     Dosage: 50 MG, QWK
     Route: 065
     Dates: start: 201402, end: 2014

REACTIONS (11)
  - Feeling hot [Recovered/Resolved]
  - Lupus-like syndrome [Recovered/Resolved]
  - Photosensitivity reaction [Recovered/Resolved]
  - Joint fluid drainage [Recovered/Resolved]
  - Rash [Recovered/Resolved]
  - Joint swelling [Recovered/Resolved]
  - Arthralgia [Recovered/Resolved]
  - Butterfly rash [Recovered/Resolved]
  - Fatigue [Recovered/Resolved]
  - Inflammation [Not Recovered/Not Resolved]
  - Injection site erythema [Recovered/Resolved]

NARRATIVE: CASE EVENT DATE: 2014
